FAERS Safety Report 18573065 (Version 1)
Quarter: 2020Q4

REPORT INFORMATION
  Report Type: Spontaneous
  Country: US (occurrence: US)
  Receive Date: 20201203
  Receipt Date: 20201203
  Transmission Date: 20210114
  Serious: Yes (Hospitalization, Other)
  Sender: FDA-Public Use
  Company Number: US-AUROBINDO-AUR-APL-2020-059191

PATIENT
  Age: 36 Year
  Sex: Male

DRUGS (10)
  1. DEXAMETHASONE. [Suspect]
     Active Substance: DEXAMETHASONE
     Indication: PRODUCT USED FOR UNKNOWN INDICATION
     Dosage: 4 MILLIGRAM, FOUR TIMES/DAY
     Route: 048
  2. FLUCONAZOLE. [Suspect]
     Active Substance: FLUCONAZOLE
     Indication: PRODUCT USED FOR UNKNOWN INDICATION
     Dosage: 800 MILLIGRAM, DAILY
     Route: 048
  3. FLUCONAZOLE. [Suspect]
     Active Substance: FLUCONAZOLE
     Dosage: 1200 MILLIGRAM, DAILY
     Route: 048
  4. VORICONAZOLE. [Suspect]
     Active Substance: VORICONAZOLE
     Indication: PRODUCT USED FOR UNKNOWN INDICATION
     Dosage: 400 MILLIGRAM, TWO TIMES A DAY
     Route: 048
  5. AMPHOTERICIN B, LIPOSOME [Suspect]
     Active Substance: AMPHOTERICIN B
     Indication: PRODUCT USED FOR UNKNOWN INDICATION
     Dosage: 5 MILLIGRAM/KILOGRAM, DAILY
     Route: 042
  6. DEXAMETHASONE INJECTION [Suspect]
     Active Substance: DEXAMETHASONE
     Dosage: 1 MILLIGRAM, TWO TIMES A DAY (WITH A 5-DAY TAPER)
     Route: 042
  7. POSACONAZOLE [Suspect]
     Active Substance: POSACONAZOLE
     Indication: PRODUCT USED FOR UNKNOWN INDICATION
     Dosage: 300 MILLIGRAM, DAILY
     Route: 042
  8. DEXAMETHASONE. [Suspect]
     Active Substance: DEXAMETHASONE
     Dosage: 15-DAY TAPER
     Route: 065
  9. DEXAMETHASONE INJECTION [Suspect]
     Active Substance: DEXAMETHASONE
     Indication: PRODUCT USED FOR UNKNOWN INDICATION
     Dosage: 3 MILLIGRAM, FOUR TIMES/DAY
     Route: 042
  10. DEXAMETHASONE. [Suspect]
     Active Substance: DEXAMETHASONE
     Dosage: 1 MILLIGRAM, DAILY (27 DAY TAPER)
     Route: 065

REACTIONS (3)
  - Gastrointestinal wall thinning [Unknown]
  - Large intestine perforation [Unknown]
  - Hepatotoxicity [Unknown]
